FAERS Safety Report 7263967-2 (Version None)
Quarter: 2011Q1

REPORT INFORMATION
  Report Type: 
  Country: None (occurrence: None)
  Receive Date: 20110130
  Receipt Date: 20101101
  Transmission Date: 20110831
  Serious: No
  Sender: FDA-Public Use
  Company Number: US-ABBOTT-10P-163-0682710-00

PATIENT
  Sex: Male
  Weight: 77.18 kg

DRUGS (7)
  1. UNKNOWN CREAM [Concomitant]
     Indication: PSORIASIS
     Dates: end: 20100801
  2. LISINOPRIL [Concomitant]
     Indication: HYPERTENSION
     Dosage: NOW AND THEN
  3. CELEBREX [Concomitant]
     Indication: RHEUMATOID ARTHRITIS
  4. HUMIRA [Suspect]
     Indication: RHEUMATOID ARTHRITIS
     Dates: start: 20100401
  5. METHYLPREDNISOLONE [Suspect]
     Indication: RHEUMATOID ARTHRITIS
     Dates: start: 20000101, end: 20100801
  6. HYDROCODONE [Concomitant]
     Indication: ARTHRALGIA
     Dosage: 5/500, AS NEEDED
  7. LIPITOR [Concomitant]
     Indication: BLOOD CHOLESTEROL INCREASED
     Dosage: OCCASSIONALLY

REACTIONS (5)
  - METAMORPHOPSIA [None]
  - BLISTER [None]
  - JOINT SWELLING [None]
  - JOINT INJURY [None]
  - VISION BLURRED [None]
